FAERS Safety Report 12220684 (Version 2)
Quarter: 2016Q2

REPORT INFORMATION
  Report Type: Spontaneous
  Country: US (occurrence: US)
  Receive Date: 20160330
  Receipt Date: 20160516
  Transmission Date: 20160815
  Serious: No
  Sender: FDA-Public Use
  Company Number: US-BIOGEN-2015BI159519

PATIENT
  Sex: Male

DRUGS (1)
  1. TECFIDERA [Suspect]
     Active Substance: DIMETHYL FUMARATE
     Indication: MULTIPLE SCLEROSIS
     Route: 065

REACTIONS (2)
  - White blood cell count decreased [Unknown]
  - Autoimmune disorder [Unknown]
